FAERS Safety Report 9239804 (Version 1)
Quarter: 2013Q2

REPORT INFORMATION
  Report Type: Spontaneous
  Country: US (occurrence: US)
  Receive Date: 20130418
  Receipt Date: 20130418
  Transmission Date: 20140414
  Serious: No
  Sender: FDA-Public Use
  Company Number: US-BAYER-2013-048808

PATIENT
  Age: 47 Year
  Sex: Female
  Weight: 61.22 kg

DRUGS (3)
  1. ALEVE TABLET [Suspect]
     Dosage: 2 DF, QD
     Route: 048
     Dates: start: 201207, end: 201304
  2. ALEVE CAPLET [Concomitant]
     Dosage: 2 DF, QD
     Route: 048
     Dates: start: 201304
  3. LEVOTHYROXINE [Concomitant]

REACTIONS (1)
  - Incorrect drug administration duration [None]
